FAERS Safety Report 4440202-1 (Version None)
Quarter: 2004Q3

REPORT INFORMATION
  Report Type: 
  Country: None (occurrence: None)
  Receive Date: 20040901
  Receipt Date: 20040901
  Transmission Date: 20050211
  Serious: Yes (Hospitalization)
  Sender: FDA-Public Use
  Company Number: None

PATIENT
  Sex: Female

DRUGS (8)
  1. VERAPAMIL [Suspect]
     Indication: HYPERTENSION
     Dosage: 480 MG PO QD
     Route: 048
  2. LABETALOL HCL [Suspect]
     Indication: HYPERTENSION
     Dosage: 200 MG PO BID
     Route: 048
  3. SYNTHROID [Concomitant]
  4. AVANDIA [Concomitant]
  5. PHOSLO [Concomitant]
  6. ROCALTROL [Concomitant]
  7. LASIX [Concomitant]
  8. CEPHALEXIN [Concomitant]

REACTIONS (18)
  - BLOOD BICARBONATE DECREASED [None]
  - BLOOD CALCIUM INCREASED [None]
  - BLOOD CHLORIDE INCREASED [None]
  - BLOOD CREATININE INCREASED [None]
  - BLOOD GLUCOSE INCREASED [None]
  - BLOOD PH DECREASED [None]
  - BLOOD UREA INCREASED [None]
  - BRADYCARDIA [None]
  - CIRCULATORY COLLAPSE [None]
  - DIZZINESS [None]
  - HEART RATE DECREASED [None]
  - HYPERHIDROSIS [None]
  - HYPERKALAEMIA [None]
  - OEDEMA PERIPHERAL [None]
  - PCO2 DECREASED [None]
  - PO2 INCREASED [None]
  - RESPIRATORY DISTRESS [None]
  - VOMITING [None]
